FAERS Safety Report 10011599 (Version 1)
Quarter: 2014Q1

REPORT INFORMATION
  Report Type: Spontaneous
  Country: US (occurrence: None)
  Receive Date: 20140313
  Receipt Date: 20140313
  Transmission Date: 20141002
  Serious: Yes (Other)
  Sender: FDA-Public Use
  Company Number: None

PATIENT
  Age: 18 Year
  Sex: Female
  Weight: 103.42 kg

DRUGS (1)
  1. LORYNA [Suspect]
     Dosage: ONE   PO  QD
     Route: 048
     Dates: start: 2012

REACTIONS (3)
  - Metrorrhagia [None]
  - Mood altered [None]
  - Product substitution issue [None]
